FAERS Safety Report 6094884-1 (Version None)
Quarter: 2009Q1

REPORT INFORMATION
  Report Type: 
  Country: None (occurrence: None)
  Receive Date: 20090227
  Receipt Date: 20090218
  Transmission Date: 20090719
  Serious: Yes (Other)
  Sender: FDA-Public Use
  Company Number: US-JNJFOC-20081102423

PATIENT
  Sex: Female

DRUGS (1)
  1. REMICADE [Suspect]
     Indication: ANKYLOSING SPONDYLITIS
     Route: 042

REACTIONS (5)
  - CHEILITIS [None]
  - MUSCULOSKELETAL STIFFNESS [None]
  - SINUSITIS [None]
  - STOMATITIS [None]
  - VISUAL IMPAIRMENT [None]
